FAERS Safety Report 10997324 (Version 1)
Quarter: 2015Q2

REPORT INFORMATION
  Report Type: Spontaneous
  Country: JP (occurrence: JP)
  Receive Date: 20150408
  Receipt Date: 20150408
  Transmission Date: 20150821
  Serious: Yes (Death, Other)
  Sender: FDA-Public Use
  Company Number: JP-CIPLA LTD.-2015JP02822

PATIENT

DRUGS (4)
  1. ETOPOSIDE. [Suspect]
     Active Substance: ETOPOSIDE
     Indication: OVARIAN EPITHELIAL CANCER
     Dosage: 50 MG, QD FOR 21 DAYS STARTING ON DAY 1
     Route: 048
  2. IRINOTECAN [Suspect]
     Active Substance: IRINOTECAN
     Indication: OVARIAN EPITHELIAL CANCER
     Dosage: 70 MG/M2 AS A 90-MIN INTRAVENOUS INFUSION ON DAYS 1 AND 15 OF A 28-DAY CYCLE
  3. METOCLOPRAMIDE. [Concomitant]
     Active Substance: METOCLOPRAMIDE
     Dosage: UNKNOWN DOSE FOR 21 DAYS STARTING ON DAY 1
     Route: 048
  4. DOMPERIDONE [Concomitant]
     Active Substance: DOMPERIDONE
     Dosage: UNKNOWN DOSE FOR 21 DAYS STARTING ON DAY 1
     Route: 048

REACTIONS (2)
  - Acute myeloid leukaemia [Unknown]
  - Acute respiratory failure [Fatal]
